FAERS Safety Report 4484271-1 (Version None)
Quarter: 2004Q3

REPORT INFORMATION
  Report Type: 
  Country: None (occurrence: None)
  Receive Date: 20040921
  Receipt Date: 20040211
  Transmission Date: 20050211
  Serious: Yes (Hospitalization)
  Sender: FDA-Public Use
  Company Number: 163-20785-04020319

PATIENT
  Age: 27 Year
  Sex: Male

DRUGS (6)
  1. THALOMID [Suspect]
     Indication: ANAPLASTIC ASTROCYTOMA
     Dosage: 400 MG, QHS, ORAL
     Route: 048
     Dates: start: 20031212, end: 20040205
  2. CPT-11 (IRINOTECAN) (UNKNOWN) [Suspect]
     Indication: ANAPLASTIC ASTROCYTOMA
     Dosage: 125 MG/M2, INTRAVENOUS
     Dates: start: 20031212
  3. KEPPRA [Concomitant]
  4. DEPAKOTE [Concomitant]
  5. LAMICTAL [Concomitant]
  6. DECADRON [Concomitant]

REACTIONS (5)
  - APHASIA [None]
  - CONVULSION [None]
  - HAEMOGLOBIN DECREASED [None]
  - LETHARGY [None]
  - MUSCLE TWITCHING [None]
